FAERS Safety Report 5258943-5 (Version None)
Quarter: 2007Q1

REPORT INFORMATION
  Report Type: 
  Country: None (occurrence: None)
  Receive Date: 20061217
  Receipt Date: 20051221
  Transmission Date: 20070707
  Serious: Yes (Other)
  Sender: FDA-Public Use
  Company Number: US-JNJFOC-20051103685

PATIENT
  Age: 29 Year
  Sex: Female
  Weight: 53.978 kg

DRUGS (1)
  1. LEVAQUIN [Suspect]
     Indication: SINUSITIS
     Dosage: 500 MG, 1 IN 1 DAY
     Dates: start: 20051111, end: 20051111

REACTIONS (3)
  - RASH [None]
  - SWELLING FACE [None]
  - THROAT TIGHTNESS [None]
